FAERS Safety Report 15355367 (Version 8)
Quarter: 2022Q3

REPORT INFORMATION
  Report Type: Other
  Country: DE (occurrence: None)
  Receive Date: 20180906
  Receipt Date: 20220826
  Transmission Date: 20221027
  Serious: Yes (Other)
  Sender: FDA-Public Use
  Company Number: DE-ROCHE-2179879

PATIENT
  Sex: Female
  Weight: 79 kg

DRUGS (13)
  1. OCREVUS [Suspect]
     Active Substance: OCRELIZUMAB
     Indication: Relapsing-remitting multiple sclerosis
     Route: 042
     Dates: start: 20180427
  2. OCREVUS [Suspect]
     Active Substance: OCRELIZUMAB
     Dosage: NEXT DOSE: 11/MAY/2018
     Route: 042
     Dates: start: 20181101
  3. OCREVUS [Suspect]
     Active Substance: OCRELIZUMAB
     Route: 042
     Dates: start: 20191115
  4. OCREVUS [Suspect]
     Active Substance: OCRELIZUMAB
     Dosage: 6TH INFUSION?VIA PORT
     Route: 042
     Dates: start: 20200515
  5. OCREVUS [Suspect]
     Active Substance: OCRELIZUMAB
     Route: 042
     Dates: start: 20201113
  6. OCREVUS [Suspect]
     Active Substance: OCRELIZUMAB
     Route: 042
     Dates: start: 20210721
  7. CORTISONE [Suspect]
     Active Substance: CORTISONE
     Indication: Multiple sclerosis relapse
     Route: 042
     Dates: start: 20180918, end: 20180920
  8. CORTISONE [Suspect]
     Active Substance: CORTISONE
     Route: 042
     Dates: start: 20180921, end: 20180921
  9. CORTISONE [Suspect]
     Active Substance: CORTISONE
     Route: 048
     Dates: start: 20180921, end: 20180921
  10. CORTISONE [Suspect]
     Active Substance: CORTISONE
     Dosage: 20X50MG TABLETS
     Route: 048
     Dates: start: 20180922, end: 20180922
  11. CHOLECALCIFEROL [Concomitant]
     Active Substance: CHOLECALCIFEROL
  12. COMIRNATY [Concomitant]
     Active Substance: TOZINAMERAN
     Indication: COVID-19 prophylaxis
     Dosage: FIRST DOSE OF VACCINATION
     Dates: start: 20210428
  13. COMIRNATY [Concomitant]
     Active Substance: TOZINAMERAN
     Dosage: SECOND DOSE OF VACCINATION
     Dates: start: 20210609

REACTIONS (26)
  - Multiple sclerosis relapse [Recovering/Resolving]
  - Dyspnoea [Recovered/Resolved]
  - Fatigue [Recovered/Resolved]
  - Nasopharyngitis [Recovered/Resolved]
  - Vertigo [Recovered/Resolved]
  - Asthenia [Recovered/Resolved]
  - Fatigue [Recovered/Resolved]
  - Headache [Recovered/Resolved]
  - Feeling abnormal [Recovered/Resolved]
  - Emotional disorder [Recovered/Resolved]
  - Initial insomnia [Recovered/Resolved]
  - Abdominal discomfort [Recovered/Resolved]
  - Mood swings [Recovered/Resolved]
  - Malaise [Recovered/Resolved]
  - Abdominal pain upper [Recovered/Resolved]
  - Nausea [Recovering/Resolving]
  - Vomiting [Recovering/Resolving]
  - Feeling cold [Recovered/Resolved]
  - Hyperhidrosis [Recovered/Resolved]
  - Muscle spasticity [Recovered/Resolved]
  - Pulpitis dental [Recovered/Resolved]
  - Hyperaesthesia teeth [Recovered/Resolved]
  - Osteitis [Recovered/Resolved]
  - Headache [Recovered/Resolved]
  - Arthralgia [Recovered/Resolved]
  - Onychomycosis [Recovering/Resolving]

NARRATIVE: CASE EVENT DATE: 20180427
